FAERS Safety Report 13536213 (Version 1)
Quarter: 2017Q2

REPORT INFORMATION
  Report Type: Spontaneous
  Country: US (occurrence: US)
  Receive Date: 20170511
  Receipt Date: 20170511
  Transmission Date: 20170830
  Serious: Yes (Death)
  Sender: FDA-Public Use
  Company Number: None

PATIENT
  Age: 63 Year
  Sex: Male
  Weight: 78.75 kg

DRUGS (6)
  1. CHLORPROMAZINE. [Suspect]
     Active Substance: CHLORPROMAZINE
     Indication: HICCUPS
     Dosage: ?          QUANTITY:1 INJECTION(S);OTHER FREQUENCY:ONCE;?
     Route: 042
     Dates: start: 20151124, end: 20151124
  2. ZIAC [Concomitant]
     Active Substance: BISOPROLOL FUMARATE\HYDROCHLOROTHIAZIDE
  3. CRESTOR [Concomitant]
     Active Substance: ROSUVASTATIN CALCIUM
  4. ONE-A-DAY NOS [Concomitant]
     Active Substance: MINERALS\VITAMINS
  5. TRICOR [Concomitant]
     Active Substance: FENOFIBRATE
  6. NEXIUM [Concomitant]
     Active Substance: ESOMEPRAZOLE MAGNESIUM

REACTIONS (1)
  - Incoherent [None]

NARRATIVE: CASE EVENT DATE: 20151124
